FAERS Safety Report 12398248 (Version 1)
Quarter: 2016Q2

REPORT INFORMATION
  Report Type: Spontaneous
  Country: FR (occurrence: FR)
  Receive Date: 20160524
  Receipt Date: 20160524
  Transmission Date: 20160815
  Serious: Yes (Other)
  Sender: FDA-Public Use
  Company Number: FR-PFIZER INC-2016269515

PATIENT
  Age: 13 Year
  Sex: Male

DRUGS (3)
  1. IRINOTECAN HCL [Suspect]
     Active Substance: IRINOTECAN HYDROCHLORIDE
     Indication: GLIOBLASTOMA
     Dosage: 125 MG/M2, SINGLE
     Route: 042
     Dates: start: 20160404
  2. ZOPHREN /00955301/ [Concomitant]
     Active Substance: ONDANSETRON
     Indication: GLIOBLASTOMA
     Dosage: 8 MG, CYCLIC
     Dates: start: 20160307
  3. AVASTIN [Concomitant]
     Active Substance: BEVACIZUMAB
     Indication: GLIOBLASTOMA
     Dosage: CYCLIC, OVER ONE AND A HALF HOUR
     Route: 041
     Dates: start: 20160222

REACTIONS (3)
  - Chills [Recovered/Resolved]
  - Hypertension [Recovered/Resolved]
  - Hypothermia [Recovered/Resolved]

NARRATIVE: CASE EVENT DATE: 20160404
